FAERS Safety Report 16539291 (Version 2)
Quarter: 2019Q3

REPORT INFORMATION
  Report Type: Spontaneous
  Country: US (occurrence: US)
  Receive Date: 20190708
  Receipt Date: 20190715
  Transmission Date: 20191004
  Serious: Yes (Other)
  Sender: FDA-Public Use
  Company Number: US-PFIZER INC-2017239668

PATIENT
  Age: 46 Year
  Sex: Female
  Weight: 95 kg

DRUGS (3)
  1. LYRICA [Suspect]
     Active Substance: PREGABALIN
     Indication: NEUROPATHY PERIPHERAL
     Dosage: 50 MG, DAILY (50 MG CAPSULE / QTY 180 / DAY SUPPLY 90)
  2. LYRICA [Suspect]
     Active Substance: PREGABALIN
     Indication: PAIN
     Dosage: 100 MG, DAILY
  3. LYRICA [Suspect]
     Active Substance: PREGABALIN
     Dosage: 150 MG, ONCE A DAY, 1 CAPSULE EVERY MORNING
     Route: 048
     Dates: start: 2009

REACTIONS (4)
  - Immune system disorder [Unknown]
  - Pneumonia [Unknown]
  - Off label use [Unknown]
  - Product use issue [Unknown]
